FAERS Safety Report 9625205 (Version 1)
Quarter: 2013Q4

REPORT INFORMATION
  Report Type: Spontaneous
  Country: US (occurrence: None)
  Receive Date: 20131015
  Receipt Date: 20131015
  Transmission Date: 20140711
  Serious: Yes (Other)
  Sender: FDA-Public Use
  Company Number: None

PATIENT
  Age: 61 Year
  Sex: Female

DRUGS (1)
  1. INCIVEK [Suspect]
     Indication: CHRONIC HEPATITIS C
     Route: 048
     Dates: start: 20130930, end: 20131011

REACTIONS (1)
  - Urticaria [None]
